FAERS Safety Report 23774173 (Version 1)
Quarter: 2024Q2

REPORT INFORMATION
  Report Type: Report from Study
  Country: CA (occurrence: CA)
  Receive Date: 20240423
  Receipt Date: 20240423
  Transmission Date: 20240716
  Serious: Yes (Other)
  Sender: FDA-Public Use
  Company Number: CA-JNJFOC-20221157302

PATIENT
  Age: 16 Year
  Sex: Female
  Weight: 50 kg

DRUGS (5)
  1. REMICADE [Suspect]
     Active Substance: INFLIXIMAB
     Indication: Colitis ulcerative
     Dosage: WEEK 0: 300 MG
     Route: 041
  2. REMICADE [Suspect]
     Active Substance: INFLIXIMAB
     Dosage: INDUCTION DOSES STARTING AT WEEK 2 AND MAINTENANCE ORDERED AT 500 MG INTRAVENOUS (9.98 MG/KG)?WEEK 1
     Route: 041
     Dates: start: 20221221
  3. REMICADE [Suspect]
     Active Substance: INFLIXIMAB
     Dosage: EARLIEST TREATMENT START DATE WAS ALSO MENTIONED AS 09-MAR-2023
     Route: 041
     Dates: start: 20231115
  4. REMICADE [Suspect]
     Active Substance: INFLIXIMAB
     Route: 041
  5. REMICADE [Suspect]
     Active Substance: INFLIXIMAB
     Route: 041
     Dates: start: 20221124

REACTIONS (3)
  - Colitis ulcerative [Not Recovered/Not Resolved]
  - Therapeutic response decreased [Not Recovered/Not Resolved]
  - Off label use [Unknown]
